FAERS Safety Report 6009127-4 (Version None)
Quarter: 2008Q4

REPORT INFORMATION
  Report Type: 
  Country: None (occurrence: None)
  Receive Date: 20081216
  Receipt Date: 20081208
  Transmission Date: 20090506
  Serious: Yes (Life-Threatening, Hospitalization)
  Sender: FDA-Public Use
  Company Number: 6047571

PATIENT
  Age: 68 Year
  Sex: Female

DRUGS (4)
  1. BISOPROLOL FUMARATE [Suspect]
     Indication: DRUG USE FOR UNKNOWN INDICATION
     Dosage: 2 DOSAGE FORMS (1 DOSAGE FORMS, 2 IN 1 D) ORAL
     Route: 048
     Dates: start: 20071209
  2. ACTILYSE (SOLUTION FOR INJECTION) (ALTEPLASE) [Suspect]
     Indication: CEREBROVASCULAR ACCIDENT
     Dosage: INTRAVENOUS (NOT OTHERWISE SPECIFIED)
     Route: 042
     Dates: start: 20071216, end: 20071216
  3. EUPRESSYL (SOLUTION FOR INJECTION) (URAPIDIL) [Suspect]
     Indication: HYPERTENSION
     Dosage: INTRAVENOUS (NOT OTHERWISE SPECIFIED)
     Route: 042
     Dates: start: 20071216, end: 20071216
  4. LASIX [Suspect]
     Indication: CARDIAC FAILURE
     Dosage: 1 DOSAGE FORMS (1 DOSAGE FORMS, 1 IN 1 D) ORAL
     Route: 048
     Dates: start: 20071208

REACTIONS (3)
  - HYPERTENSION [None]
  - HYPOTENSION [None]
  - ISCHAEMIC STROKE [None]
